FAERS Safety Report 7374345-X (Version None)
Quarter: 2011Q1

REPORT INFORMATION
  Report Type: 
  Country: None (occurrence: None)
  Receive Date: 20110315
  Receipt Date: 20110303
  Transmission Date: 20110831
  Serious: Yes (Other)
  Sender: FDA-Public Use
  Company Number: 2011MA002193

PATIENT
  Age: 48 Year

DRUGS (1)
  1. ISOSORBIDE MONONITRATE [Suspect]
     Dosage: 60 MG

REACTIONS (3)
  - ANGINA PECTORIS [None]
  - CONDITION AGGRAVATED [None]
  - DRUG INEFFECTIVE [None]
